FAERS Safety Report 21672346 (Version 1)
Quarter: 2022Q4

REPORT INFORMATION
  Report Type: Spontaneous
  Country: RU (occurrence: RU)
  Receive Date: 20221202
  Receipt Date: 20221202
  Transmission Date: 20230113
  Serious: Yes (Hospitalization, Other)
  Sender: FDA-Public Use
  Company Number: RU-BAYER-2022P024923

PATIENT
  Age: 30 Year
  Sex: Female

DRUGS (1)
  1. EYLEA [Suspect]
     Active Substance: AFLIBERCEPT
     Indication: Diabetic retinal oedema
     Dosage: 1 DF, ONCE, SOLUTION FOR INJECTION
     Route: 031
     Dates: start: 20221017, end: 20221017

REACTIONS (2)
  - Vitrectomy [Unknown]
  - Uveitis [Unknown]

NARRATIVE: CASE EVENT DATE: 20221020
